FAERS Safety Report 6583948-1 (Version None)
Quarter: 2010Q1

REPORT INFORMATION
  Report Type: 
  Country: None (occurrence: None)
  Receive Date: 20100216
  Receipt Date: 20091204
  Transmission Date: 20100710
  Serious: No
  Sender: FDA-Public Use
  Company Number: US-ABBOTT-09P-163-0612573-00

PATIENT
  Sex: Female
  Weight: 63.56 kg

DRUGS (2)
  1. SIMCOR [Suspect]
     Indication: HYPERLIPIDAEMIA
     Dosage: 500/20 MG QHS
     Dates: start: 20091130
  2. GABAPENTIN [Concomitant]
     Indication: BACK PAIN

REACTIONS (1)
  - DYSPEPSIA [None]
